FAERS Safety Report 15119353 (Version 1)
Quarter: 2018Q3

REPORT INFORMATION
  Report Type: Spontaneous
  Country: US (occurrence: US)
  Receive Date: 20180612
  Receipt Date: 20180612
  Transmission Date: 20181010
  Serious: Yes (Hospitalization)
  Sender: FDA-Public Use
  Company Number: None

PATIENT
  Age: 92 Year
  Sex: Female
  Weight: 69.9 kg

DRUGS (12)
  1. PLETAL [Suspect]
     Active Substance: CILOSTAZOL
     Indication: CORONARY ARTERY DISEASE
     Dosage: ?          OTHER FREQUENCY:TTHSS;?
     Route: 048
  2. NORVASC [Concomitant]
     Active Substance: AMLODIPINE BESYLATE
  3. TENORMIN [Concomitant]
     Active Substance: ATENOLOL
  4. ALIGN [Concomitant]
     Active Substance: BIFIDOBACTERIUM LONGUM SUBSP. INFANTIS
  5. VIBRA?TABS [Concomitant]
     Active Substance: DOXYCYCLINE HYCLATE
  6. ECOTRIN [Suspect]
     Active Substance: ASPIRIN
     Route: 048
  7. WARFARIN [Suspect]
     Active Substance: WARFARIN
     Indication: ATRIAL FIBRILLATION
     Dosage: ?          OTHER FREQUENCY:M?W?F;?
     Route: 048
  8. KENALOG [Concomitant]
     Active Substance: TRIAMCINOLONE ACETONIDE
  9. APAP [Concomitant]
     Active Substance: ACETAMINOPHEN
  10. ULTRAM [Concomitant]
     Active Substance: TRAMADOL HYDROCHLORIDE
  11. MALATONIN [Concomitant]
  12. ATIBAN [Concomitant]

REACTIONS (5)
  - Subarachnoid haemorrhage [None]
  - International normalised ratio increased [None]
  - Aneurysm [None]
  - Intracranial mass [None]
  - Headache [None]

NARRATIVE: CASE EVENT DATE: 20180327
